FAERS Safety Report 6537436-9 (Version None)
Quarter: 2009Q4

REPORT INFORMATION
  Report Type: 
  Country: None (occurrence: None)
  Receive Date: 20091229
  Receipt Date: 20091120
  Transmission Date: 20100525
  Serious: No
  Sender: FDA-Public Use
  Company Number: 1000010308

PATIENT
  Age: 55 Year
  Sex: Female

DRUGS (4)
  1. BYSTOLIC [Suspect]
     Indication: HYPERTENSION
     Dosage: 5 MG (5 MG, 1 IN 1 D), ORAL
     Route: 048
     Dates: start: 20091113
  2. SYNTHROID [Concomitant]
  3. DILTIAZEM HCL [Concomitant]
  4. VENTOLIN [Concomitant]

REACTIONS (1)
  - DYSPNOEA [None]
